FAERS Safety Report 10525453 (Version 1)
Quarter: 2014Q4

REPORT INFORMATION
  Report Type: Spontaneous
  Country: JP (occurrence: None)
  Receive Date: 20141015
  Receipt Date: 20141015
  Transmission Date: 20150528
  Serious: Yes (Hospitalization)
  Sender: FDA-Public Use
  Company Number: FK201404037

PATIENT
  Age: 51 Year
  Sex: Male

DRUGS (3)
  1. FOLINIC ACID (FOLINIC ACID) [Concomitant]
  2. FLUOROURACIL (FLUOROURACIL) [Concomitant]
     Active Substance: FLUOROURACIL
  3. OXALIPLATIN (MANUFACTURER UNKNOWN) (OXALIPLATIN) (OXALIPLATIN) [Suspect]
     Active Substance: OXALIPLATIN
     Indication: METASTASES TO LIVER
     Dates: start: 200911

REACTIONS (6)
  - Portal hypertension [None]
  - Hypersensitivity [None]
  - Blood pressure decreased [None]
  - Splenomegaly [None]
  - Thrombocytopenia [None]
  - Depressed level of consciousness [None]
